FAERS Safety Report 9420279 (Version 1)
Quarter: 2013Q3

REPORT INFORMATION
  Report Type: Spontaneous
  Country: US (occurrence: US)
  Receive Date: 20130725
  Receipt Date: 20130725
  Transmission Date: 20140515
  Serious: Yes (Hospitalization, Other)
  Sender: FDA-Public Use
  Company Number: US-BAYER-2013-089916

PATIENT
  Age: 33 Year
  Sex: Female
  Weight: 110.93 kg

DRUGS (21)
  1. YASMIN [Suspect]
     Indication: POLYCYSTIC OVARIES
  2. OCELLA [Suspect]
  3. YAZ [Suspect]
  4. NAPROXEN [Concomitant]
     Dosage: 250 MG, UNK
     Dates: start: 20090628
  5. NAPROXEN [Concomitant]
     Dosage: 250 MG, UNK
     Dates: start: 20090724
  6. NAPROXEN [Concomitant]
     Dosage: 250 MG, UNK
     Dates: start: 20090904
  7. CYCLOBENZAPRINE [Concomitant]
     Dosage: 10 MG, UNK
     Dates: start: 20090628
  8. CYCLOBENZAPRINE [Concomitant]
     Dosage: 10 MG, UNK
     Dates: start: 20090805
  9. DIPHENHYDRAMINE [Concomitant]
     Dosage: 50 MG, UNK
     Dates: start: 20090628
  10. DIPHENHYDRAMINE [Concomitant]
     Dosage: 50 MG, UNK
     Dates: start: 20090724
  11. NEXIUM [Concomitant]
     Dosage: 40 MG, UNK
     Dates: start: 20090701
  12. NEXIUM [Concomitant]
     Dosage: 40 MG, UNK
     Dates: start: 20090805
  13. NEXIUM [Concomitant]
     Dosage: 40 MG, UNK
     Dates: start: 20090904
  14. SPIRONOLACTONE [Concomitant]
     Dosage: 25 MG, UNK
     Dates: start: 20090707
  15. SPIRONOLACTONE [Concomitant]
     Dosage: 25 MG, UNK
     Dates: start: 20090808
  16. SPIRONOLACTONE [Concomitant]
     Dosage: 25 MG, UNK
     Dates: start: 20090910
  17. LORATADINE [Concomitant]
     Dosage: 10 MG, UNK
     Dates: start: 20090707
  18. LORATADINE [Concomitant]
     Dosage: 10 MG, UNK
     Dates: start: 20090808
  19. LORATADINE [Concomitant]
     Dosage: 10 MG, UNK
     Dates: start: 20090904
  20. PROPRANOLOL [Concomitant]
     Dosage: 10 MG, UNK
     Dates: start: 20090805
  21. PROPRANOLOL [Concomitant]
     Dosage: 10 MG, UNK
     Dates: start: 20090904

REACTIONS (2)
  - Deep vein thrombosis [None]
  - Cholelithiasis [None]
